FAERS Safety Report 4654836-2 (Version None)
Quarter: 2005Q2

REPORT INFORMATION
  Report Type: 
  Country: None (occurrence: None)
  Receive Date: 20050505
  Receipt Date: 20050425
  Transmission Date: 20051028
  Serious: Yes (Hospitalization)
  Sender: FDA-Public Use
  Company Number: 05-000285

PATIENT
  Sex: Female

DRUGS (3)
  1. PHENAZOPYRIDINE HCL TAB [Suspect]
     Dates: start: 20000101
  2. MACROBID [Suspect]
     Indication: URETHRITIS
     Dosage: ORAL
     Route: 048
     Dates: start: 20000101
  3. XANAX [Suspect]
     Dates: start: 20000101

REACTIONS (5)
  - BLOOD PRESSURE DECREASED [None]
  - DRUG HYPERSENSITIVITY [None]
  - PYREXIA [None]
  - RETCHING [None]
  - TREMOR [None]
